FAERS Safety Report 18861449 (Version 4)
Quarter: 2021Q2

REPORT INFORMATION
  Report Type: Report from Study
  Country: None (occurrence: US)
  Receive Date: 20210209
  Receipt Date: 20210405
  Transmission Date: 20210717
  Serious: Yes (Other)
  Sender: FDA-Public Use
  Company Number: US-ABBVIE-20K-163-3612682-00

PATIENT
  Age: 64 Year
  Sex: Female

DRUGS (5)
  1. RINVOQ [Suspect]
     Active Substance: UPADACITINIB
     Route: 048
  2. RINVOQ [Suspect]
     Active Substance: UPADACITINIB
     Route: 048
  3. RINVOQ [Suspect]
     Active Substance: UPADACITINIB
     Route: 048
  4. RINVOQ [Suspect]
     Active Substance: UPADACITINIB
     Indication: RHEUMATOID ARTHRITIS
     Route: 048
     Dates: start: 20200702
  5. ENBREL [Concomitant]
     Active Substance: ETANERCEPT
     Indication: PRODUCT USED FOR UNKNOWN INDICATION

REACTIONS (25)
  - Loss of personal independence in daily activities [Not Recovered/Not Resolved]
  - Neck surgery [Unknown]
  - Tooth fracture [Unknown]
  - Mobility decreased [Unknown]
  - Pain [Not Recovered/Not Resolved]
  - Gastroenteritis viral [Not Recovered/Not Resolved]
  - Onychomadesis [Unknown]
  - Inflammation [Unknown]
  - Rheumatoid arthritis [Recovered/Resolved]
  - Back pain [Unknown]
  - Stress [Unknown]
  - Influenza [Recovered/Resolved]
  - Hip arthroplasty [Not Recovered/Not Resolved]
  - Skin fissures [Unknown]
  - Musculoskeletal disorder [Unknown]
  - Ligament sprain [Unknown]
  - Finger deformity [Unknown]
  - Erythema [Not Recovered/Not Resolved]
  - Finger deformity [Unknown]
  - Onychomadesis [Not Recovered/Not Resolved]
  - Herpes zoster [Recovering/Resolving]
  - Spinal operation [Unknown]
  - Knee arthroplasty [Not Recovered/Not Resolved]
  - Peripheral swelling [Not Recovered/Not Resolved]
  - Rheumatoid arthritis [Not Recovered/Not Resolved]

NARRATIVE: CASE EVENT DATE: 202102
